FAERS Safety Report 17908486 (Version 1)
Quarter: 2020Q2

REPORT INFORMATION
  Report Type: Spontaneous
  Country: US (occurrence: US)
  Receive Date: 20200617
  Receipt Date: 20200617
  Transmission Date: 20200714
  Serious: Yes (Death)
  Sender: FDA-Public Use
  Company Number: US-AMNEAL PHARMACEUTICALS-2020-AMRX-01695

PATIENT
  Age: 13 Year
  Sex: Male

DRUGS (8)
  1. VIGABATRIN. [Suspect]
     Active Substance: VIGABATRIN
     Indication: INFANTILE SPASMS
     Dosage: 1500 MILLIGRAM, DAILY AM
     Route: 048
     Dates: start: 201803, end: 20190109
  2. SABRIL [Suspect]
     Active Substance: VIGABATRIN
     Indication: INFANTILE SPASMS
     Dosage: 1500 MILLIGRAM, DAILY, AM
     Route: 048
     Dates: start: 201802, end: 201803
  3. SABRIL [Suspect]
     Active Substance: VIGABATRIN
     Dosage: 1500 MILLIGRAM, DAILY, AM
     Route: 048
     Dates: start: 20190214
  4. SABRIL [Suspect]
     Active Substance: VIGABATRIN
     Dosage: 2000 MILLIGRAM, BEDTIME
     Route: 048
     Dates: start: 20190214
  5. VIGABATRIN. [Suspect]
     Active Substance: VIGABATRIN
     Dosage: 200 MILLIGRAM, DAILY, PM
     Route: 048
  6. VIGABATRIN. [Suspect]
     Active Substance: VIGABATRIN
     Indication: SEIZURE
     Dosage: 2000 MILLIGRAM, BEDTIME
     Route: 048
     Dates: start: 201803, end: 20190109
  7. VIGABATRIN. [Suspect]
     Active Substance: VIGABATRIN
     Dosage: 1500 MILLIGRAM, DAILY AM
     Route: 048
  8. SABRIL [Suspect]
     Active Substance: VIGABATRIN
     Dosage: 2000 MILLIGRAM, BEDTIME
     Route: 048
     Dates: start: 201802, end: 201803

REACTIONS (1)
  - Adverse event [Fatal]
